FAERS Safety Report 10663543 (Version 1)
Quarter: 2014Q4

REPORT INFORMATION
  Report Type: Spontaneous
  Country: NL (occurrence: NL)
  Receive Date: 20141219
  Receipt Date: 20141219
  Transmission Date: 20150529
  Serious: Yes (Life-Threatening)
  Sender: FDA-Public Use
  Company Number: NL-ASTRAZENECA-2014SE95456

PATIENT
  Age: 58 Year
  Sex: Male

DRUGS (5)
  1. QUETIAPINE [Suspect]
     Active Substance: QUETIAPINE
     Dosage: GENERIC, 100 MG EVERY DAY
     Route: 048
     Dates: start: 20141007
  2. QUETIAPINE [Suspect]
     Active Substance: QUETIAPINE
     Dosage: GENERIC, 400 MG EVERY DAY
     Route: 048
     Dates: start: 20141007
  3. PROMETHAZINE [Concomitant]
     Active Substance: PROMETHAZINE\PROMETHAZINE HYDROCHLORIDE
     Route: 048
     Dates: start: 2013
  4. MIRTAZAPINE. [Concomitant]
     Active Substance: MIRTAZAPINE
     Route: 048
     Dates: start: 2013
  5. QUETIAPINE [Suspect]
     Active Substance: QUETIAPINE
     Route: 048

REACTIONS (5)
  - Impaired self-care [Recovered/Resolved]
  - Nausea [Recovered/Resolved with Sequelae]
  - Therapeutic response unexpected [Recovered/Resolved with Sequelae]
  - Memory impairment [Recovered/Resolved with Sequelae]
  - Panic attack [Recovered/Resolved with Sequelae]

NARRATIVE: CASE EVENT DATE: 20141009
